FAERS Safety Report 9404816 (Version 1)
Quarter: 2013Q3

REPORT INFORMATION
  Report Type: Spontaneous
  Country: IT (occurrence: IT)
  Receive Date: 20130717
  Receipt Date: 20130717
  Transmission Date: 20140515
  Serious: Yes (Hospitalization)
  Sender: FDA-Public Use
  Company Number: IT-TEVA-417771ISR

PATIENT
  Age: 50 Year
  Sex: Female
  Weight: 46 kg

DRUGS (2)
  1. FLUOROURACILE TEVA [Suspect]
     Indication: GASTRIC CANCER
     Dosage: 1600 MG/M2 DAILY;
     Dates: start: 20130307
  2. CALCIO LEVOFOLINATO TEVA [Concomitant]
     Indication: GASTRIC CANCER
     Dosage: 100 MG/M2 DAILY; POWDER FOR SOLUTION FOR INFUSION
     Route: 042

REACTIONS (6)
  - Asthenia [Unknown]
  - Mucosal inflammation [Unknown]
  - Pain in extremity [Unknown]
  - Proctalgia [Unknown]
  - Proctalgia [Unknown]
  - Constipation [Unknown]
